FAERS Safety Report 24972827 (Version 1)
Quarter: 2025Q1

REPORT INFORMATION
  Report Type: Report from Study
  Country: CA (occurrence: CA)
  Receive Date: 20250215
  Receipt Date: 20250215
  Transmission Date: 20250409
  Serious: Yes (Hospitalization, Other)
  Sender: CELLTRION
  Company Number: CA-CELLTRION INC.-2025CA000060

PATIENT

DRUGS (1)
  1. ADALIMUMAB-AATY [Suspect]
     Active Substance: ADALIMUMAB-AATY
     Indication: Crohn^s disease
     Dosage: 40MG SC Q2W
     Route: 058
     Dates: start: 20240207

REACTIONS (3)
  - Nephrolithiasis [Unknown]
  - Cystitis [Unknown]
  - Intentional dose omission [Unknown]
